FAERS Safety Report 13963796 (Version 1)
Quarter: 2017Q3

REPORT INFORMATION
  Report Type: Spontaneous
  Country: US (occurrence: None)
  Receive Date: 20170913
  Receipt Date: 20170913
  Transmission Date: 20171128
  Serious: Yes (Hospitalization)
  Sender: FDA-Public Use
  Company Number: None

PATIENT
  Age: 78 Year
  Sex: Male
  Weight: 99.79 kg

DRUGS (17)
  1. SIMVASTATIN. [Concomitant]
     Active Substance: SIMVASTATIN
  2. ASA [Concomitant]
     Active Substance: ASPIRIN
  3. PANTORAZOLE SOD [Concomitant]
  4. COLACE [Concomitant]
     Active Substance: DOCUSATE SODIUM
  5. TAMSULOSIN HCL [Concomitant]
     Active Substance: TAMSULOSIN
  6. FIBER CAP [Concomitant]
  7. HUMALOG [Concomitant]
     Active Substance: INSULIN LISPRO
  8. MULTIVIT [Concomitant]
     Active Substance: VITAMINS
  9. TYLENOL [Concomitant]
     Active Substance: ACETAMINOPHEN
  10. LANTUS [Concomitant]
     Active Substance: INSULIN GLARGINE
  11. VITAMIN C [Concomitant]
     Active Substance: ASCORBIC ACID
  12. FELODIDINE [Concomitant]
  13. COZAAR [Concomitant]
     Active Substance: LOSARTAN POTASSIUM
  14. CELEBREX [Concomitant]
     Active Substance: CELECOXIB
  15. CALCIUM [Concomitant]
     Active Substance: CALCIUM
  16. TRULICITY [Suspect]
     Active Substance: DULAGLUTIDE
     Indication: DIABETES MELLITUS
     Route: 058
     Dates: start: 20170707, end: 20170722
  17. GLIMEPIRIDE ER [Concomitant]

REACTIONS (4)
  - Pruritus [None]
  - Blood potassium increased [None]
  - Rash [None]
  - Blood creatine increased [None]

NARRATIVE: CASE EVENT DATE: 20170908
